FAERS Safety Report 21683075 (Version 1)
Quarter: 2022Q4

REPORT INFORMATION
  Report Type: Spontaneous
  Country: US (occurrence: None)
  Receive Date: 20221204
  Receipt Date: 20221204
  Transmission Date: 20230113
  Serious: Yes (Disabling)
  Sender: FDA-Public Use
  Company Number: None

PATIENT
  Age: 66 Year
  Sex: Female
  Weight: 56.25 kg

DRUGS (5)
  1. ATORVASTATIN [Suspect]
     Active Substance: ATORVASTATIN
     Indication: Blood cholesterol decreased
     Dosage: OTHER QUANTITY : 1 CAPSULE(S);?FREQUENCY : AT BEDTIME;?
     Route: 048
     Dates: start: 20220819, end: 20221203
  2. IBUPROFEN [Concomitant]
     Active Substance: IBUPROFEN
  3. FISH [Concomitant]
     Active Substance: FISH
  4. VITAMIN D [Concomitant]
     Active Substance: VITAMIN D NOS
  5. PYRIDOXINE HYDROCHLORIDE [Concomitant]
     Active Substance: PYRIDOXINE HYDROCHLORIDE

REACTIONS (2)
  - Asthenia [None]
  - Infection [None]

NARRATIVE: CASE EVENT DATE: 20221001
